FAERS Safety Report 5033140-7 (Version None)
Quarter: 2006Q2

REPORT INFORMATION
  Report Type: 
  Country: None (occurrence: None)
  Receive Date: 20060622
  Receipt Date: 20060615
  Transmission Date: 20061013
  Serious: Yes (Hospitalization)
  Sender: FDA-Public Use
  Company Number: 2006UW12810

PATIENT
  Age: 40 Year

DRUGS (2)
  1. SEROQUEL [Suspect]
     Indication: PERSONALITY DISORDER
     Route: 048
  2. METHADONE HCL [Concomitant]
     Dosage: 30-40 MG
     Route: 048

REACTIONS (1)
  - DRUG TOXICITY [None]
